FAERS Safety Report 11821746 (Version 1)
Quarter: 2015Q4

REPORT INFORMATION
  Report Type: Spontaneous
  Country: US (occurrence: US)
  Receive Date: 20151210
  Receipt Date: 20151210
  Transmission Date: 20160305
  Serious: No
  Sender: FDA-Public Use
  Company Number: US-ASTRAZENECA-2015SF22195

PATIENT
  Sex: Female
  Weight: 54 kg

DRUGS (8)
  1. LOTREL [Concomitant]
     Active Substance: AMLODIPINE BESYLATE\BENAZEPRIL HYDROCHLORIDE
     Indication: HYPERTENSION
     Dosage: DAILY
     Route: 048
     Dates: start: 2002
  2. PROGESTERONE. [Concomitant]
     Active Substance: PROGESTERONE
     Indication: NEOPLASM MALIGNANT
     Route: 048
     Dates: start: 2008
  3. PROGESTERONE. [Concomitant]
     Active Substance: PROGESTERONE
     Indication: BONE DISORDER
     Route: 048
     Dates: start: 2008
  4. HOTZE CORDISOL SR [Concomitant]
     Route: 048
     Dates: start: 2004
  5. CELEBREX [Concomitant]
     Active Substance: CELECOXIB
     Indication: ARTHRITIS
     Route: 048
     Dates: start: 1995
  6. MINERALS NOS [Concomitant]
     Active Substance: MINERALS
  7. PULMICORT FLEXHALER [Suspect]
     Active Substance: BUDESONIDE
     Indication: ASTHMA
     Dosage: 180 MCG, 4 PUFFS TWICE DAILY
     Route: 055
  8. VITAMINS NOS [Concomitant]
     Active Substance: VITAMINS

REACTIONS (4)
  - Dyspnoea [Unknown]
  - Body height decreased [Unknown]
  - Bone density decreased [Unknown]
  - Fear [Unknown]
